FAERS Safety Report 4698049-7 (Version None)
Quarter: 2005Q2

REPORT INFORMATION
  Report Type: 
  Country: None (occurrence: None)
  Receive Date: 20050623
  Receipt Date: 20050527
  Transmission Date: 20051028
  Serious: Yes (Hospitalization)
  Sender: FDA-Public Use
  Company Number: DE-BRISTOL-MYERS SQUIBB COMPANY-12987236

PATIENT
  Age: 26 Year
  Sex: Male
  Weight: 77 kg

DRUGS (2)
  1. ABILIFY [Suspect]
     Indication: SCHIZOPHRENIA
     Dosage: INITIATED AT 10 MG/DAY; TITRATED UP TO 20 MG/DAY ON 22-FEB-2005.
     Route: 048
     Dates: start: 20050215
  2. FLUANXOL [Concomitant]
     Dates: start: 20050303

REACTIONS (2)
  - PSYCHOTIC DISORDER [None]
  - SLEEP DISORDER [None]
